FAERS Safety Report 12067692 (Version 3)
Quarter: 2016Q1

REPORT INFORMATION
  Report Type: Spontaneous
  Country: GB (occurrence: GB)
  Receive Date: 20160210
  Receipt Date: 20160309
  Transmission Date: 20160526
  Serious: Yes (Life-Threatening, Hospitalization)
  Sender: FDA-Public Use
  Company Number: GB-ROCHE-1708562

PATIENT
  Sex: Male
  Weight: 93 kg

DRUGS (10)
  1. OMEPRAZOLE. [Concomitant]
     Active Substance: OMEPRAZOLE
  2. XOLAIR [Suspect]
     Active Substance: OMALIZUMAB
     Indication: ASTHMA
     Route: 058
     Dates: start: 2008, end: 2008
  3. FUROSEMIDE. [Concomitant]
     Active Substance: FUROSEMIDE
  4. RAMIPRIL. [Concomitant]
     Active Substance: RAMIPRIL
  5. SYMBICORT [Concomitant]
     Active Substance: BUDESONIDE\FORMOTEROL FUMARATE DIHYDRATE
  6. MOMETASONE [Concomitant]
     Active Substance: MOMETASONE
  7. TADALAFIL [Concomitant]
     Active Substance: TADALAFIL
  8. THIAMINE. [Concomitant]
     Active Substance: THIAMINE
  9. SIMVASTATIN. [Concomitant]
     Active Substance: SIMVASTATIN
  10. MONTELUKAST [Concomitant]
     Active Substance: MONTELUKAST SODIUM

REACTIONS (2)
  - Congestive cardiomyopathy [Recovered/Resolved with Sequelae]
  - Acute left ventricular failure [Recovered/Resolved with Sequelae]
